FAERS Safety Report 8839241 (Version 1)
Quarter: 2012Q4

REPORT INFORMATION
  Report Type: 
  Country: JP (occurrence: JP)
  Receive Date: 20121015
  Receipt Date: 20121015
  Transmission Date: 20130627
  Serious: Yes (Other)
  Sender: FDA-Public Use
  Company Number: JP-UCBSA-068498

PATIENT
  Sex: Male

DRUGS (3)
  1. XYZAL [Suspect]
     Indication: URTICARIA
     Route: 048
  2. XYZAL [Suspect]
     Indication: URTICARIA
     Route: 048
  3. INTERFERON [Suspect]
     Route: 051

REACTIONS (4)
  - Hepatitis C [Unknown]
  - Somnolence [Recovered/Resolved]
  - Malaise [Recovered/Resolved]
  - Pruritus [Unknown]
